FAERS Safety Report 7148224-7 (Version None)
Quarter: 2010Q4

REPORT INFORMATION
  Report Type: 
  Country: None (occurrence: None)
  Receive Date: 20101209
  Receipt Date: 20101127
  Transmission Date: 20110411
  Serious: Yes (Other)
  Sender: FDA-Public Use
  Company Number: PHHO2010ZA18240

PATIENT
  Sex: Male
  Weight: 70.5 kg

DRUGS (1)
  1. TASIGNA [Suspect]
     Indication: GASTROINTESTINAL STROMAL TUMOUR
     Dosage: 400MG
     Route: 048
     Dates: start: 20101013, end: 20101125

REACTIONS (10)
  - ANAEMIA [None]
  - BACTERIAL INFECTION [None]
  - CHILLS [None]
  - CONCOMITANT DISEASE PROGRESSION [None]
  - DRUG INEFFECTIVE [None]
  - GENERAL PHYSICAL HEALTH DETERIORATION [None]
  - HYPOALBUMINAEMIA [None]
  - PROTEUS INFECTION [None]
  - PYREXIA [None]
  - SEPSIS [None]
